FAERS Safety Report 10781622 (Version 1)
Quarter: 2015Q1

REPORT INFORMATION
  Report Type: Spontaneous
  Country: US (occurrence: None)
  Receive Date: 20150209
  Receipt Date: 20150209
  Transmission Date: 20150721
  Serious: Yes (Hospitalization)
  Sender: FDA-Public Use
  Company Number: None

PATIENT
  Age: 79 Year
  Sex: Female
  Weight: 73 kg

DRUGS (15)
  1. LEVOTHYROXINE (SYNTHROID, LEVOTHROID) [Concomitant]
  2. NYSTATIN (MYCOSTATIN) [Concomitant]
  3. ONDANSETRON (ZOFRAN) [Concomitant]
  4. ASPIRIN 81 MG CHEWABLE TABLET [Concomitant]
  5. SIMVASTATIN (ZOCOR) [Concomitant]
  6. FUROSEMIDE (LASIX) [Concomitant]
  7. POTASSIUM CHLORIDE (MICRO-K) [Concomitant]
  8. DIPHENOXYLATE-ATROPINE (LOMOTIL) [Concomitant]
  9. ALPHA-D-GALACTOSIDASE (BEANO PO) [Concomitant]
  10. TRAMADOL (ULTRAM) [Concomitant]
  11. AZATHIOPRINE (IMURAN) [Concomitant]
  12. AMIODARONE (CORDARONE) [Concomitant]
  13. RIVAROXABAN 15 MG JANSSEN [Suspect]
     Active Substance: RIVAROXABAN
     Indication: ATRIAL FIBRILLATION
     Route: 048
  14. BALSALAZIDE (COLAZAL) [Concomitant]
  15. LANSOPRAZOLE (PREVACID) [Concomitant]

REACTIONS (11)
  - Anaemia [None]
  - Lower gastrointestinal haemorrhage [None]
  - Haematochezia [None]
  - Dizziness postural [None]
  - Bradycardia [None]
  - Fall [None]
  - Joint injury [None]
  - Asthenia [None]
  - Fatigue [None]
  - Rectal haemorrhage [None]
  - Dyspnoea exertional [None]

NARRATIVE: CASE EVENT DATE: 20140311
